FAERS Safety Report 6231463-7 (Version None)
Quarter: 2009Q2

REPORT INFORMATION
  Report Type: 
  Country: None (occurrence: None)
  Receive Date: 20090616
  Receipt Date: 20090608
  Transmission Date: 20091009
  Serious: Yes (Congenital Anomaly)
  Sender: FDA-Public Use
  Company Number: A0681089A

PATIENT
  Sex: Female
  Weight: 3.1 kg

DRUGS (2)
  1. PAXIL CR [Suspect]
     Indication: BIPOLAR DISORDER
     Dosage: 50MG PER DAY
  2. PAROXETINE HCL [Suspect]
     Indication: BIPOLAR DISORDER
     Dosage: 40MG UNKNOWN

REACTIONS (6)
  - CALCINOSIS [None]
  - DRUG EXPOSURE DURING PREGNANCY [None]
  - PLAGIOCEPHALY [None]
  - SPINE MALFORMATION [None]
  - STRABISMUS [None]
  - TORTICOLLIS [None]
